FAERS Safety Report 12054298 (Version 3)
Quarter: 2016Q1

REPORT INFORMATION
  Report Type: Spontaneous
  Country: SE (occurrence: SE)
  Receive Date: 20160209
  Receipt Date: 20160308
  Transmission Date: 20160526
  Serious: Yes (Death, Other)
  Sender: FDA-Public Use
  Company Number: SE-PFIZER INC-2016065973

PATIENT

DRUGS (2)
  1. CYTOTEC [Suspect]
     Active Substance: MISOPROSTOL
     Indication: LABOUR INDUCTION
     Dosage: 8 DF, UNK
     Route: 064
     Dates: start: 201411
  2. TRANDATE [Suspect]
     Active Substance: LABETALOL HYDROCHLORIDE
     Indication: BLOOD PRESSURE INCREASED
     Dosage: UNK
     Route: 064
     Dates: start: 201411

REACTIONS (3)
  - Maternal exposure during pregnancy [Fatal]
  - Foetal monitoring abnormal [Fatal]
  - Death neonatal [Fatal]

NARRATIVE: CASE EVENT DATE: 201411
